FAERS Safety Report 5907794-4 (Version None)
Quarter: 2008Q3

REPORT INFORMATION
  Report Type: 
  Country: None (occurrence: None)
  Receive Date: 20080929
  Receipt Date: 20080916
  Transmission Date: 20090109
  Serious: Yes (Other)
  Sender: FDA-Public Use
  Company Number: B0538676A

PATIENT
  Age: 51 Year
  Sex: Male

DRUGS (4)
  1. MELPHALAN UNSPECIFIED INJECTABLE (GENERIC) (MELPHALAN) [Suspect]
     Indication: BONE MARROW TRANSPLANT
     Dosage: 140 MG/M2/PER DAY/INTRAVENOUS
     Route: 042
  2. BUSULPHAN (FORMULATION UNKNOWN) (GENERIC) (BUSULFAN) [Suspect]
     Indication: BONE MARROW TRANSPLANT
     Dosage: 3.2 MG/KG/PER DAY/INTRAVENOUS
     Route: 042
  3. GRANULOCYTE COL. STIM. FACT (FORMULATION UNKNOWN) (GRANULOCYTE COL. ST [Suspect]
     Dosage: 480 UG/PER DAY/SUBCUTANEOUS
     Route: 058
  4. CYCLOPHOSPHAMIDE [Suspect]
     Dosage: 2 G/M2/PER DAY/INTRAVENOUS
     Route: 042

REACTIONS (4)
  - DIARRHOEA [None]
  - DRUG TOXICITY [None]
  - FEBRILE NEUTROPENIA [None]
  - STOMATITIS [None]
